FAERS Safety Report 22141833 (Version 1)
Quarter: 2023Q1

REPORT INFORMATION
  Report Type: Report from Study
  Country: US (occurrence: US)
  Receive Date: 20230327
  Receipt Date: 20230327
  Transmission Date: 20230418
  Serious: No
  Sender: FDA-Public Use
  Company Number: US-002147023-NVSC2023US064864

PATIENT
  Sex: Female

DRUGS (1)
  1. CLOBETASOL [Suspect]
     Active Substance: CLOBETASOL
     Indication: Product used for unknown indication
     Dosage: 0.05 %
     Route: 065

REACTIONS (18)
  - Skin lesion [Unknown]
  - Acne [Unknown]
  - Psoriasis [Not Recovered/Not Resolved]
  - Seborrhoeic keratosis [Unknown]
  - Rosacea [Unknown]
  - Nail dystrophy [Unknown]
  - Nodule [Unknown]
  - Scar [Unknown]
  - Dermatillomania [Unknown]
  - Papule [Unknown]
  - Macule [Unknown]
  - Tattoo [Unknown]
  - Haemangioma of skin [Unknown]
  - Varicose vein [Unknown]
  - Lentigo [Unknown]
  - Erythema [Unknown]
  - Telangiectasia [Unknown]
  - Drug ineffective [Unknown]
